FAERS Safety Report 13424777 (Version 11)
Quarter: 2019Q2

REPORT INFORMATION
  Report Type: Report from Study
  Country: US (occurrence: US)
  Receive Date: 20170410
  Receipt Date: 20190621
  Transmission Date: 20190711
  Serious: Yes (Hospitalization)
  Sender: FDA-Public Use
  Company Number: US-ACTELION-A-NJ2017-152119

PATIENT
  Age: 50 Year
  Sex: Female
  Weight: 54.42 kg

DRUGS (17)
  1. COUMADIN [Concomitant]
     Active Substance: WARFARIN SODIUM
     Dosage: 2 MG, UNK
     Dates: start: 20171204
  2. LORAZEPAM. [Concomitant]
     Active Substance: LORAZEPAM
  3. PREDNISONE. [Concomitant]
     Active Substance: PREDNISONE
     Dosage: UNK
     Dates: start: 20180501
  4. OPSUMIT [Suspect]
     Active Substance: MACITENTAN
     Dosage: UNK
     Route: 048
  5. LINEZOLID. [Concomitant]
     Active Substance: LINEZOLID
  6. ZOFRAN [Concomitant]
     Active Substance: ONDANSETRON HYDROCHLORIDE
  7. CIPROFLOXACIN. [Concomitant]
     Active Substance: CIPROFLOXACIN
     Dosage: UNK
     Dates: start: 20180608
  8. CITALOPRAM [Concomitant]
     Active Substance: CITALOPRAM HYDROBROMIDE
  9. OMEPRAZOLE. [Concomitant]
     Active Substance: OMEPRAZOLE
     Dosage: 40 MG, UNK
     Dates: start: 20170411
  10. METHOTREXATE. [Concomitant]
     Active Substance: METHOTREXATE
     Dosage: 2.5 MG, UNK
     Dates: start: 20171211
  11. WELLBUTRIN [Concomitant]
     Active Substance: BUPROPION HYDROCHLORIDE
  12. WARFARIN [Concomitant]
     Active Substance: WARFARIN
  13. OPSUMIT [Suspect]
     Active Substance: MACITENTAN
     Indication: PULMONARY HYPERTENSION
     Dosage: 10 MG, QD
     Route: 048
     Dates: start: 20131121
  14. AMOXICILLIN + CLAV. POTASSIUM [Concomitant]
     Active Substance: AMOXICILLIN\CLAVULANATE POTASSIUM
     Dosage: UNK
     Dates: start: 20180522
  15. DOXYCYCLINE MONOHYDRATE [Concomitant]
     Active Substance: DOXYCYCLINE
  16. HYDROMORPHONE [Concomitant]
     Active Substance: HYDROMORPHONE
  17. ONDANSETRON [Concomitant]
     Active Substance: ONDANSETRON
     Dosage: 4 MG, UNK
     Dates: start: 20180525

REACTIONS (11)
  - Sepsis [Unknown]
  - Memory impairment [Not Recovered/Not Resolved]
  - Infection [Unknown]
  - Product dose omission [Not Recovered/Not Resolved]
  - Migraine [Unknown]
  - Insomnia [Unknown]
  - Pneumonia [Not Recovered/Not Resolved]
  - Hospitalisation [Unknown]
  - Oesophageal pain [Not Recovered/Not Resolved]
  - Cellulitis [Unknown]
  - Localised infection [Unknown]

NARRATIVE: CASE EVENT DATE: 201709
